FAERS Safety Report 17040940 (Version 1)
Quarter: 2019Q4

REPORT INFORMATION
  Report Type: Spontaneous
  Country: IT (occurrence: IT)
  Receive Date: 20191118
  Receipt Date: 20191118
  Transmission Date: 20200122
  Serious: Yes (Life-Threatening)
  Sender: FDA-Public Use
  Company Number: IT-SA-2019SA316011

PATIENT
  Age: 59 Year
  Sex: Male
  Weight: 88 kg

DRUGS (1)
  1. OXALIPLATIN. [Suspect]
     Active Substance: OXALIPLATIN
     Indication: NEOPLASM
     Dosage: 85 MG/M2 (MILLIGRAM/SQ. METER), QCY
     Route: 041
     Dates: start: 20191008, end: 20191008

REACTIONS (4)
  - Flushing [Recovering/Resolving]
  - Bronchospasm [Recovering/Resolving]
  - Hypersensitivity [Recovering/Resolving]
  - Heat stroke [Recovering/Resolving]

NARRATIVE: CASE EVENT DATE: 20191008
